FAERS Safety Report 17820034 (Version 3)
Quarter: 2020Q2

REPORT INFORMATION
  Report Type: Spontaneous
  Country: SE (occurrence: SE)
  Receive Date: 20200525
  Receipt Date: 20200616
  Transmission Date: 20200714
  Serious: Yes (Life-Threatening, Hospitalization, Other)
  Sender: FDA-Public Use
  Company Number: SE-AUROBINDO-AUR-APL-2020-024976

PATIENT
  Age: 75 Year
  Sex: Male
  Weight: 112 kg

DRUGS (11)
  1. ENZALUTAMIDE [Suspect]
     Active Substance: ENZALUTAMIDE
     Indication: PROSTATE CANCER METASTATIC
     Dosage: 160 MILLIGRAM, ONCE A DAY
     Route: 048
     Dates: start: 20200113, end: 20200402
  2. ACETYLSALICYLIC ACID [Concomitant]
     Active Substance: ASPIRIN
     Dosage: UNK
     Route: 065
     Dates: start: 20200312
  3. ACETYLSALICYLIC ACID [Concomitant]
     Active Substance: ASPIRIN
     Indication: THROMBOSIS PROPHYLAXIS
     Dosage: UNK
     Route: 065
     Dates: start: 20160130
  4. TRIPTORELIN [Concomitant]
     Active Substance: TRIPTORELIN
     Indication: PROSTATE CANCER
     Dosage: UNK
     Route: 065
     Dates: start: 20190213
  5. WARFARIN [Concomitant]
     Active Substance: WARFARIN
     Indication: THROMBOSIS
     Dosage: UNK
     Route: 065
     Dates: start: 20200131
  6. REPAGLINIDE. [Concomitant]
     Active Substance: REPAGLINIDE
     Indication: DIABETES MELLITUS
     Dosage: UNK
     Route: 065
     Dates: start: 20200130
  7. REPAGLINIDE. [Concomitant]
     Active Substance: REPAGLINIDE
     Dosage: UNK
     Route: 065
     Dates: start: 20200312
  8. ROSUVASTATIN. [Concomitant]
     Active Substance: ROSUVASTATIN
     Indication: HYPERCHOLESTEROLAEMIA
     Dosage: UNK
     Route: 065
     Dates: start: 20200312
  9. METOPROLOL FILM-COATED TABLET [Suspect]
     Active Substance: METOPROLOL
     Indication: HYPERTENSION
     Dosage: 50 MILLIGRAM, ONCE A DAY
     Route: 048
     Dates: start: 20200321, end: 20200331
  10. METOPROLOL FILM-COATED TABLET [Suspect]
     Active Substance: METOPROLOL
     Dosage: 100 MILLIGRAM, ONCE A DAY
     Route: 048
     Dates: start: 20200401
  11. CYANOCOBALAMIN. [Concomitant]
     Active Substance: CYANOCOBALAMIN
     Indication: PROSTATE CANCER
     Dosage: UNK
     Route: 065
     Dates: start: 20200312

REACTIONS (9)
  - Blood potassium increased [Unknown]
  - Haemoglobin decreased [Unknown]
  - Ventricular extrasystoles [Unknown]
  - Neutrophil count decreased [Unknown]
  - Blood creatinine decreased [Unknown]
  - Anaemia [Recovered/Resolved]
  - Platelet count decreased [Unknown]
  - Ventricular arrhythmia [Recovered/Resolved]
  - Deep vein thrombosis [Not Recovered/Not Resolved]

NARRATIVE: CASE EVENT DATE: 20200309
